FAERS Safety Report 4342644-1 (Version None)
Quarter: 2004Q2

REPORT INFORMATION
  Report Type: 
  Country: None (occurrence: None)
  Receive Date: 20040421
  Receipt Date: 20040316
  Transmission Date: 20050107
  Serious: Yes (Hospitalization)
  Sender: FDA-Public Use
  Company Number: 200410918JP

PATIENT
  Age: 34 Year
  Sex: Female
  Weight: 49.2 kg

DRUGS (4)
  1. KETEK [Suspect]
     Indication: SINUSITIS
     Route: 048
     Dates: start: 20040201
  2. CEPHALEXIN [Suspect]
     Indication: SINUSITIS
     Route: 048
     Dates: start: 20040101
  3. NIPOLAZIN [Suspect]
     Indication: SINUSITIS
     Route: 048
     Dates: start: 20031201, end: 20040310
  4. LEFTOSE [Suspect]
     Indication: SINUSITIS
     Route: 048
     Dates: start: 20031201, end: 20040310

REACTIONS (4)
  - CHOLECYSTITIS [None]
  - EOSINOPHIL COUNT INCREASED [None]
  - HEPATOMEGALY [None]
  - LIVER DISORDER [None]
